FAERS Safety Report 7117485-2 (Version None)
Quarter: 2010Q4

REPORT INFORMATION
  Report Type: 
  Country: None (occurrence: None)
  Receive Date: 20101122
  Receipt Date: 20101117
  Transmission Date: 20110411
  Serious: Yes (Other)
  Sender: FDA-Public Use
  Company Number: BR-PFIZER INC-2010145834

PATIENT
  Sex: Female
  Weight: 68 kg

DRUGS (3)
  1. CHAMPIX [Suspect]
     Indication: TOBACCO USER
     Dosage: UNK
     Route: 048
     Dates: start: 20101101
  2. LOSARTAN POTASSIUM [Concomitant]
     Indication: HYPERTENSION
     Dosage: UNK
  3. SYNTHROID [Concomitant]
     Indication: HYPERTHYROIDISM
     Dosage: UNK

REACTIONS (5)
  - CONFUSIONAL STATE [None]
  - DYSPNOEA [None]
  - NAUSEA [None]
  - PAIN [None]
  - VISION BLURRED [None]
